FAERS Safety Report 6406590-1 (Version None)
Quarter: 2009Q4

REPORT INFORMATION
  Report Type: 
  Country: None (occurrence: None)
  Receive Date: 20091014
  Receipt Date: 20091005
  Transmission Date: 20100525
  Serious: Yes (Death)
  Sender: FDA-Public Use
  Company Number: GXKR2009IN10955

PATIENT
  Age: 45 Year
  Sex: Female

DRUGS (2)
  1. WARFARIN SODIUM [Suspect]
     Indication: ATRIAL THROMBOSIS
     Dosage: ORAL
     Route: 048
  2. WARFARIN SODIUM [Suspect]
     Indication: INTRACARDIAC THROMBUS
     Dosage: ORAL
     Route: 048

REACTIONS (4)
  - CARDIO-RESPIRATORY ARREST [None]
  - DYSPNOEA [None]
  - EMBOLISM [None]
  - MITRAL VALVE DISEASE [None]
